FAERS Safety Report 14582297 (Version 2)
Quarter: 2018Q1

REPORT INFORMATION
  Report Type: Report from Study
  Country: US (occurrence: US)
  Receive Date: 20180228
  Receipt Date: 20180322
  Transmission Date: 20180509
  Serious: Yes (Death, Other)
  Sender: FDA-Public Use
  Company Number: US-GILEAD-2018-0323596

PATIENT
  Age: 42 Year
  Sex: Male
  Weight: 73.6 kg

DRUGS (8)
  1. AMBRISENTAN [Suspect]
     Active Substance: AMBRISENTAN
     Indication: PRODUCT USED FOR UNKNOWN INDICATION
     Dosage: 5 MG, UNK
     Route: 048
     Dates: start: 20150219
  2. COLACE [Concomitant]
     Active Substance: DOCUSATE SODIUM
  3. AMILORIDE [Concomitant]
     Active Substance: AMILORIDE
  4. ADCIRCA [Concomitant]
     Active Substance: TADALAFIL
  5. ZITHROMAX [Concomitant]
     Active Substance: AZITHROMYCIN DIHYDRATE
  6. ALBUTEROL                          /00139501/ [Concomitant]
     Active Substance: ALBUTEROL
  7. DAPSONE. [Concomitant]
     Active Substance: DAPSONE
  8. TRUVADA [Suspect]
     Active Substance: EMTRICITABINE\TENOFOVIR DISOPROXIL FUMARATE
     Indication: HIV INFECTION
     Dosage: 200-300 MG
     Route: 048

REACTIONS (6)
  - Sepsis [Fatal]
  - Pyrexia [Unknown]
  - Influenza [Fatal]
  - Acute respiratory distress syndrome [Fatal]
  - Chills [Unknown]
  - Diarrhoea [Unknown]

NARRATIVE: CASE EVENT DATE: 20171227
